FAERS Safety Report 14165015 (Version 3)
Quarter: 2019Q3

REPORT INFORMATION
  Report Type: Report from Study
  Country: BR (occurrence: BR)
  Receive Date: 20171107
  Receipt Date: 20190711
  Transmission Date: 20191004
  Serious: Yes (Hospitalization, Other)
  Sender: FDA-Public Use
  Company Number: BR-ROCHE-2015532

PATIENT
  Age: 56 Year
  Sex: Female
  Weight: 49 kg

DRUGS (10)
  1. ACTEMRA [Suspect]
     Active Substance: TOCILIZUMAB
     Indication: RHEUMATOID ARTHRITIS
     Dosage: RECENT DOSE ON 01/SEP/2017
     Route: 042
     Dates: start: 20160601
  2. IBUPROFEN. [Concomitant]
     Active Substance: IBUPROFEN
     Dosage: 600 UNIT NOT REPORTED
     Route: 065
  3. BETATRINTA [Concomitant]
     Active Substance: BETAMETHASONE DIPROPIONATE\BETAMETHASONE SODIUM PHOSPHATE
     Indication: JOINT SWELLING
  4. ACTEMRA [Suspect]
     Active Substance: TOCILIZUMAB
     Dosage: 80 MG/4 ML
     Route: 042
  5. PREDNISONE. [Concomitant]
     Active Substance: PREDNISONE
  6. TRIANCIL [Concomitant]
     Indication: JOINT SWELLING
  7. BETATRINTA [Concomitant]
     Active Substance: BETAMETHASONE DIPROPIONATE\BETAMETHASONE SODIUM PHOSPHATE
     Indication: PAIN
     Route: 065
  8. METHOTREXATE. [Concomitant]
     Active Substance: METHOTREXATE
  9. ALENDRONATE SODIUM. [Concomitant]
     Active Substance: ALENDRONATE SODIUM
  10. OMEPRAZOLE. [Concomitant]
     Active Substance: OMEPRAZOLE

REACTIONS (21)
  - Road traffic accident [Unknown]
  - Pain [Not Recovered/Not Resolved]
  - Injury corneal [Not Recovered/Not Resolved]
  - Facial paralysis [Unknown]
  - Foot fracture [Unknown]
  - Joint swelling [Unknown]
  - Syncope [Recovered/Resolved]
  - Influenza [Unknown]
  - Foot fracture [Unknown]
  - Eye inflammation [Not Recovered/Not Resolved]
  - Hypertension [Unknown]
  - Visual impairment [Unknown]
  - Intercepted product storage error [Unknown]
  - Ear haemorrhage [Recovered/Resolved]
  - Arthralgia [Unknown]
  - Gait inability [Unknown]
  - Ankle fracture [Not Recovered/Not Resolved]
  - Mouth haemorrhage [Recovered/Resolved]
  - Hemiplegia [Not Recovered/Not Resolved]
  - Hemiplegia [Unknown]
  - Hand fracture [Unknown]

NARRATIVE: CASE EVENT DATE: 20170912
